FAERS Safety Report 5570918-5 (Version None)
Quarter: 2007Q4

REPORT INFORMATION
  Report Type: 
  Country: None (occurrence: None)
  Receive Date: 20071221
  Receipt Date: 20071213
  Transmission Date: 20080405
  Serious: Yes (Other)
  Sender: FDA-Public Use
  Company Number: US-BAYER-200714160BCC

PATIENT
  Age: 26 Year
  Sex: Female

DRUGS (1)
  1. ALKA SELTZER PLUS LIQUID GELS DAY/NIGHT COMBO [Suspect]
     Indication: NASOPHARYNGITIS

REACTIONS (2)
  - ABDOMINAL PAIN UPPER [None]
  - VAGINAL HAEMORRHAGE [None]
